FAERS Safety Report 25994312 (Version 1)
Quarter: 2025Q4

REPORT INFORMATION
  Report Type: Spontaneous
  Country: CN (occurrence: CN)
  Receive Date: 20251104
  Receipt Date: 20251104
  Transmission Date: 20260118
  Serious: Yes (Other)
  Sender: RANBAXY
  Company Number: CN-SUN PHARMACEUTICAL INDUSTRIES INC-2025R1-534435

PATIENT
  Age: 54 Year
  Sex: Male
  Weight: 75 kg

DRUGS (4)
  1. LIDOCAINE [Suspect]
     Active Substance: LIDOCAINE
     Indication: Sedation
     Dosage: 30 MILLIGRAM
     Route: 065
  2. PROPOFOL [Suspect]
     Active Substance: PROPOFOL
     Indication: Sedation
     Dosage: 150 MILLIGRAM
     Route: 065
  3. PROPOFOL [Suspect]
     Active Substance: PROPOFOL
     Dosage: 30 MILLIGRAM
     Route: 042
  4. BUTORPHANOL [Suspect]
     Active Substance: BUTORPHANOL
     Indication: Sedation
     Dosage: 0.2 MILLIGRAM
     Route: 065

REACTIONS (2)
  - Cardiac arrest [Recovered/Resolved]
  - Bezold-Jarisch reflex [Recovered/Resolved]
